FAERS Safety Report 10875271 (Version 2)
Quarter: 2015Q1

REPORT INFORMATION
  Report Type: Report from Study
  Country: US (occurrence: US)
  Receive Date: 20150227
  Receipt Date: 20150318
  Transmission Date: 20150721
  Serious: Yes (Other)
  Sender: FDA-Public Use
  Company Number: US-ACTELION-A-US2015-113421

PATIENT
  Age: 67 Year
  Sex: Female

DRUGS (3)
  1. ADCIRCA [Concomitant]
     Active Substance: TADALAFIL
  2. MACITENTAN [Suspect]
     Active Substance: MACITENTAN
     Indication: PULMONARY HYPERTENSION
     Dosage: UNK
     Route: 048
  3. TREPROSTINIL DIOLAMIN [Concomitant]
     Active Substance: TREPROSTINIL DIOLAMINE

REACTIONS (9)
  - Anaemia [Unknown]
  - Anxiety [Unknown]
  - Fatigue [Unknown]
  - Transfusion [Unknown]
  - Skin ulcer [Unknown]
  - Internal haemorrhage [Unknown]
  - Sepsis [Unknown]
  - Nausea [Unknown]
  - Dysphonia [Unknown]

NARRATIVE: CASE EVENT DATE: 201502
